FAERS Safety Report 4843986-3 (Version None)
Quarter: 2005Q4

REPORT INFORMATION
  Report Type: 
  Country: None (occurrence: None)
  Receive Date: 20051202
  Receipt Date: 20050413
  Transmission Date: 20060501
  Serious: No
  Sender: FDA-Public Use
  Company Number: US-GLAXOSMITHKLINE-A0554263A

PATIENT

DRUGS (1)
  1. AUGMENTIN XR [Suspect]
     Dosage: 1000MG UNKNOWN
     Route: 048
     Dates: start: 20050401, end: 20050101

REACTIONS (1)
  - DIARRHOEA [None]
